FAERS Safety Report 5760930-5 (Version None)
Quarter: 2008Q2

REPORT INFORMATION
  Report Type: 
  Country: None (occurrence: None)
  Receive Date: 20080606
  Receipt Date: 20080528
  Transmission Date: 20081010
  Serious: Yes (Other)
  Sender: FDA-Public Use
  Company Number: ES-ROCHE-567459

PATIENT
  Age: 80 Year
  Sex: Female

DRUGS (1)
  1. BONIVA [Suspect]
     Indication: OSTEOPOROSIS
     Dosage: THERAPY START DATE: 2008
     Route: 048

REACTIONS (2)
  - MUSCULOSKELETAL STIFFNESS [None]
  - POLYMYALGIA RHEUMATICA [None]
